FAERS Safety Report 17204604 (Version 2)
Quarter: 2021Q1

REPORT INFORMATION
  Report Type: Spontaneous
  Country: US (occurrence: US)
  Receive Date: 20191226
  Receipt Date: 20210302
  Transmission Date: 20210419
  Serious: Yes (Other)
  Sender: FDA-Public Use
  Company Number: US-ASTRAZENECA-2019SF86114

PATIENT
  Age: 17340 Day
  Sex: Female
  Weight: 56.2 kg

DRUGS (27)
  1. CEPHALEXIN. [Concomitant]
     Active Substance: CEPHALEXIN
     Indication: INFECTION
     Dates: start: 20161202, end: 20170116
  2. POTASSIUM [Concomitant]
     Active Substance: POTASSIUM
     Indication: HYPOKALAEMIA
     Dates: start: 2017
  3. TRIAMTERINE [Concomitant]
  4. ADVAIR HFA [Concomitant]
     Active Substance: FLUTICASONE PROPIONATE\SALMETEROL XINAFOATE
  5. DIAZEPAM. [Concomitant]
     Active Substance: DIAZEPAM
  6. NEXIUM [Suspect]
     Active Substance: ESOMEPRAZOLE MAGNESIUM
     Indication: GASTROOESOPHAGEAL REFLUX DISEASE
     Dosage: GENERIC
     Route: 065
     Dates: start: 2015, end: 201702
  7. TIZANIDINE. [Concomitant]
     Active Substance: TIZANIDINE
  8. NEXIUM [Suspect]
     Active Substance: ESOMEPRAZOLE MAGNESIUM
     Indication: GASTROOESOPHAGEAL REFLUX DISEASE
     Route: 048
     Dates: start: 201501, end: 201701
  9. NEXIUM 24HR [Suspect]
     Active Substance: ESOMEPRAZOLE MAGNESIUM
     Indication: GASTROOESOPHAGEAL REFLUX DISEASE
     Route: 048
     Dates: start: 2015, end: 201702
  10. QUETIAPINE. [Concomitant]
     Active Substance: QUETIAPINE
  11. MUPIROCIN. [Concomitant]
     Active Substance: MUPIROCIN
  12. ZANTAC [Concomitant]
     Active Substance: RANITIDINE HYDROCHLORIDE
     Dates: start: 2017, end: 2018
  13. QUETIAPINE. [Concomitant]
     Active Substance: QUETIAPINE
  14. LISINOPRL [Concomitant]
     Active Substance: LISINOPRIL
  15. BACLOFEN. [Concomitant]
     Active Substance: BACLOFEN
  16. LORAZEPAM. [Concomitant]
     Active Substance: LORAZEPAM
  17. MEPERIDINE [Concomitant]
     Active Substance: MEPERIDINE
  18. SMZ/TMP [Concomitant]
     Active Substance: SULFAMETHOXAZOLE\TRIMETHOPRIM
  19. HYDROCODONE [Concomitant]
     Active Substance: HYDROCODONE
  20. ENOXAPARIN [Concomitant]
     Active Substance: ENOXAPARIN
  21. OXYCODONE [Concomitant]
     Active Substance: OXYCODONE
  22. RANITIDINE. [Concomitant]
     Active Substance: RANITIDINE
  23. NEXIUM [Suspect]
     Active Substance: ESOMEPRAZOLE MAGNESIUM
     Indication: GASTROOESOPHAGEAL REFLUX DISEASE
     Route: 048
     Dates: start: 2015, end: 201702
  24. NEXIUM 24HR [Suspect]
     Active Substance: ESOMEPRAZOLE MAGNESIUM
     Indication: GASTROOESOPHAGEAL REFLUX DISEASE
     Route: 048
     Dates: start: 201501, end: 201701
  25. RANITIDINE. [Concomitant]
     Active Substance: RANITIDINE
     Indication: GASTROOESOPHAGEAL REFLUX DISEASE
     Dates: start: 20170217
  26. LORAZEPAM. [Concomitant]
     Active Substance: LORAZEPAM
  27. CLONIDINE. [Concomitant]
     Active Substance: CLONIDINE

REACTIONS (1)
  - Chronic kidney disease [Not Recovered/Not Resolved]

NARRATIVE: CASE EVENT DATE: 20170202
